FAERS Safety Report 8058446-9 (Version None)
Quarter: 2012Q1

REPORT INFORMATION
  Report Type: 
  Country: None (occurrence: None)
  Receive Date: 20120119
  Receipt Date: 20120119
  Transmission Date: 20120608
  Serious: Yes (Hospitalization, Disabling, Other)
  Sender: FDA-Public Use
  Company Number: None

PATIENT
  Age: 80 Year
  Sex: Female
  Weight: 49.8957 kg

DRUGS (3)
  1. PROLIA [Suspect]
     Indication: INTERVERTEBRAL DISC DISORDER
     Dosage: 1 - SHOT 6-MONTH SHOT
     Dates: start: 20110628
  2. PROLIA [Suspect]
     Indication: OSTEOPOROSIS
     Dosage: 1 - SHOT 6-MONTH SHOT
     Dates: start: 20110628
  3. PROLIA [Suspect]
     Indication: FRACTURE
     Dosage: 1 - SHOT 6-MONTH SHOT
     Dates: start: 20110628

REACTIONS (6)
  - CEREBROVASCULAR ACCIDENT [None]
  - DEAFNESS UNILATERAL [None]
  - WALKING AID USER [None]
  - DYSGRAPHIA [None]
  - FATIGUE [None]
  - BALANCE DISORDER [None]
